FAERS Safety Report 16790077 (Version 1)
Quarter: 2019Q3

REPORT INFORMATION
  Report Type: Spontaneous
  Country: AU (occurrence: AU)
  Receive Date: 20190910
  Receipt Date: 20190910
  Transmission Date: 20191005
  Serious: Yes (Other)
  Sender: FDA-Public Use
  Company Number: AU-MYLANLABS-2019M1083990

PATIENT
  Age: 16 Year
  Sex: Female

DRUGS (7)
  1. FLUOXETINE [Suspect]
     Active Substance: FLUOXETINE HYDROCHLORIDE
     Indication: PRODUCT USED FOR UNKNOWN INDICATION
     Dosage: UNK
  2. LITHIUM CARBONATE. [Suspect]
     Active Substance: LITHIUM CARBONATE
     Indication: PRODUCT USED FOR UNKNOWN INDICATION
     Dosage: UNK
  3. LAMOTRIGINE. [Concomitant]
     Active Substance: LAMOTRIGINE
     Dosage: UNK
  4. TRIFLUOPERAZINE HYDROCHLORIDE. [Concomitant]
     Active Substance: TRIFLUOPERAZINE HYDROCHLORIDE
     Dosage: UNK
  5. LEVOTHYROXINE SODIUM. [Concomitant]
     Active Substance: LEVOTHYROXINE SODIUM
     Dosage: UNK
  6. CLOPINE [Suspect]
     Active Substance: CLOZAPINE
     Indication: PRODUCT USED FOR UNKNOWN INDICATION
     Dosage: UNK
  7. DIANE (CYPROTERONE ACETATE\ETHINYL ESTRADIOL) [Concomitant]
     Active Substance: CYPROTERONE ACETATE\ETHINYL ESTRADIOL

REACTIONS (7)
  - Weight increased [Unknown]
  - Hyperhidrosis [Unknown]
  - Orthostatic hypotension [Unknown]
  - Withdrawal syndrome [Unknown]
  - Electrocardiogram QT prolonged [Unknown]
  - Lipids abnormal [Unknown]
  - Sedation [Unknown]
